FAERS Safety Report 22324489 (Version 1)
Quarter: 2023Q2

REPORT INFORMATION
  Report Type: Spontaneous
  Country: US (occurrence: None)
  Receive Date: 20230514
  Receipt Date: 20230514
  Transmission Date: 20230722
  Serious: Yes (Life-Threatening, Hospitalization, Disabling, Other)
  Sender: FDA-Public Use
  Company Number: None

PATIENT
  Age: 35 Year
  Sex: Male
  Weight: 103.5 kg

DRUGS (3)
  1. XANAX [Suspect]
     Active Substance: ALPRAZOLAM
     Indication: Anxiety
     Dosage: OTHER QUANTITY : 1 TABLET(S);?FREQUENCY : AS NEEDED;?
     Route: 048
     Dates: start: 20230216, end: 20230330
  2. BUSPAR [Concomitant]
     Active Substance: BUSPIRONE HYDROCHLORIDE
  3. BENZODIAZEPINE [Concomitant]
     Active Substance: BENZODIAZEPINE

REACTIONS (10)
  - Blood pressure increased [None]
  - Tremor [None]
  - Hepatic enzyme abnormal [None]
  - Tachycardia [None]
  - Mental status changes [None]
  - Confusional state [None]
  - Aggression [None]
  - Therapy cessation [None]
  - Drug withdrawal syndrome [None]
  - Imprisonment [None]

NARRATIVE: CASE EVENT DATE: 20230330
